FAERS Safety Report 18163326 (Version 1)
Quarter: 2020Q3

REPORT INFORMATION
  Report Type: Spontaneous
  Country: US (occurrence: US)
  Receive Date: 20200818
  Receipt Date: 20200818
  Transmission Date: 20201103
  Serious: Yes (Other)
  Sender: FDA-Public Use
  Company Number: US-BAUSCH-BL-2020-022590

PATIENT
  Sex: Female

DRUGS (1)
  1. LACRISERT [Suspect]
     Active Substance: HYDROXYPROPYL CELLULOSE
     Indication: PRODUCT USED FOR UNKNOWN INDICATION
     Dosage: USING FOR OVER 30 YEARS
     Route: 065

REACTIONS (8)
  - Sjogren^s syndrome [Unknown]
  - Therapy interrupted [Unknown]
  - Eye disorder [Not Recovered/Not Resolved]
  - Product supply issue [Unknown]
  - Eye swelling [Not Recovered/Not Resolved]
  - Ill-defined disorder [Not Recovered/Not Resolved]
  - Ocular hyperaemia [Not Recovered/Not Resolved]
  - Ocular discomfort [Not Recovered/Not Resolved]
